FAERS Safety Report 11716464 (Version 2)
Quarter: 2015Q4

REPORT INFORMATION
  Report Type: Report from Study
  Country: US (occurrence: US)
  Receive Date: 20151109
  Receipt Date: 20151209
  Transmission Date: 20160304
  Serious: Yes (Hospitalization, Other)
  Sender: FDA-Public Use
  Company Number: US-BAXALTA-2015BLT002627

PATIENT
  Sex: Female

DRUGS (1)
  1. GAMMAGARD LIQUID [Suspect]
     Active Substance: HUMAN IMMUNOGLOBULIN G
     Indication: IMMUNODEFICIENCY COMMON VARIABLE
     Dosage: UNK UNK, 1X A WEEK
     Route: 058
     Dates: start: 201511

REACTIONS (9)
  - Sinus disorder [Unknown]
  - Hypoaesthesia [Not Recovered/Not Resolved]
  - Influenza like illness [Unknown]
  - Pain in extremity [Unknown]
  - Fall [Unknown]
  - Sinusitis [Unknown]
  - Sjogren^s syndrome [Not Recovered/Not Resolved]
  - Neuropathy peripheral [Unknown]
  - Head injury [Unknown]

NARRATIVE: CASE EVENT DATE: 2015
